FAERS Safety Report 23569183 (Version 3)
Quarter: 2024Q3

REPORT INFORMATION
  Report Type: Report from Study
  Country: DE (occurrence: DE)
  Receive Date: 20240227
  Receipt Date: 20240815
  Transmission Date: 20241017
  Serious: No
  Sender: ROCHE
  Company Number: DE-ROCHE-2551361

PATIENT
  Age: 49 Year
  Sex: Male

DRUGS (16)
  1. OCREVUS [Suspect]
     Active Substance: OCRELIZUMAB
     Indication: Secondary progressive multiple sclerosis
     Dosage: 196 DAYS
     Route: 042
     Dates: start: 20200115, end: 20200115
  2. OCREVUS [Suspect]
     Active Substance: OCRELIZUMAB
     Route: 042
     Dates: start: 20200129
  3. OCREVUS [Suspect]
     Active Substance: OCRELIZUMAB
     Route: 042
     Dates: start: 20200715
  4. OCREVUS [Suspect]
     Active Substance: OCRELIZUMAB
     Route: 042
     Dates: start: 20210120
  5. OCREVUS [Suspect]
     Active Substance: OCRELIZUMAB
     Route: 042
  6. CORTISONE [Suspect]
     Active Substance: CORTISONE
     Indication: Multiple sclerosis relapse
     Route: 042
     Dates: end: 20200711
  7. BACLOFEN [Concomitant]
     Active Substance: BACLOFEN
  8. VITAMIN D3 [Concomitant]
     Active Substance: CHOLECALCIFEROL
  9. ZOPICLONE [Concomitant]
     Active Substance: ZOPICLONE
  10. PREGABALIN [Concomitant]
     Active Substance: PREGABALIN
     Dosage: AS REQUIRED
  11. PREGABALIN [Concomitant]
     Active Substance: PREGABALIN
  12. PREGABALIN [Concomitant]
     Active Substance: PREGABALIN
  13. CITALOPRAM [Concomitant]
     Active Substance: CITALOPRAM\CITALOPRAM HYDROBROMIDE
  14. MOVICOL [Concomitant]
     Active Substance: POLYETHYLENE GLYCOL 3350\POTASSIUM CHLORIDE\SODIUM BICARBONATE\SODIUM CHLORIDE
     Dates: start: 20210131
  15. DALFAMPRIDINE [Concomitant]
     Active Substance: DALFAMPRIDINE
  16. CARBAMAZEPINE [Concomitant]
     Active Substance: CARBAMAZEPINE

REACTIONS (26)
  - Fatigue [Recovered/Resolved]
  - Abdominal pain upper [Recovered/Resolved]
  - Gastric dilatation [Recovered/Resolved]
  - Constipation [Not Recovered/Not Resolved]
  - Diarrhoea [Recovered/Resolved]
  - Feeling hot [Recovering/Resolving]
  - Headache [Recovered/Resolved]
  - Pain in extremity [Recovered/Resolved]
  - Dysphagia [Recovering/Resolving]
  - Salivary hypersecretion [Not Recovered/Not Resolved]
  - Muscular weakness [Recovering/Resolving]
  - Muscle spasticity [Recovered/Resolved]
  - Depressed mood [Recovered/Resolved]
  - Off label use [Unknown]
  - Pain [Recovered/Resolved]
  - Hand fracture [Recovered/Resolved]
  - Back pain [Recovered/Resolved]
  - Feeling hot [Recovered/Resolved]
  - Synovial cyst [Not Recovered/Not Resolved]
  - Vertigo [Recovering/Resolving]
  - Influenza [Recovered/Resolved]
  - Erythema [Recovered/Resolved]
  - Rash pruritic [Recovered/Resolved]
  - Liver function test increased [Recovered/Resolved]
  - Injection site discomfort [Recovered/Resolved]
  - Fatigue [Recovered/Resolved]

NARRATIVE: CASE EVENT DATE: 20200115
